FAERS Safety Report 5772788-9 (Version None)
Quarter: 2008Q2

REPORT INFORMATION
  Report Type: 
  Country: None (occurrence: None)
  Receive Date: 20080613
  Receipt Date: 20080603
  Transmission Date: 20081010
  Serious: Yes (Life-Threatening, Hospitalization)
  Sender: FDA-Public Use
  Company Number: FR-PFIZER INC-2007085843

PATIENT
  Sex: Male

DRUGS (17)
  1. LYRICA [Suspect]
     Indication: NEURALGIA
     Route: 048
     Dates: start: 20070701, end: 20070914
  2. LYRICA [Suspect]
     Indication: DIABETIC NEUROPATHY
  3. GLUCOPHAGE [Concomitant]
  4. AMAREL [Concomitant]
     Route: 048
  5. RENITEC [Concomitant]
     Indication: HYPERTENSION
     Route: 048
  6. ISOPTIN [Concomitant]
     Route: 048
  7. AUGMENTIN '125' [Concomitant]
  8. TAHOR [Concomitant]
     Route: 048
  9. PLAVIX [Concomitant]
  10. METFORMIN [Concomitant]
     Route: 048
  11. KARDEGIC [Concomitant]
  12. GABAPENTIN [Concomitant]
  13. LEVOTHYROXINE SODIUM [Concomitant]
  14. ALL OTHER THERAPEUTIC PRODUCTS [Concomitant]
  15. ENALAPRIL MALEATE [Concomitant]
     Route: 048
  16. GLIMEPIRIDE [Concomitant]
     Route: 048
  17. VERAPAMIL [Concomitant]
     Route: 048

REACTIONS (5)
  - CIRCULATORY COLLAPSE [None]
  - HYPERKALAEMIA [None]
  - NODAL RHYTHM [None]
  - RENAL FAILURE ACUTE [None]
  - SHOCK [None]
